FAERS Safety Report 24548134 (Version 3)
Quarter: 2024Q4

REPORT INFORMATION
  Report Type: Spontaneous
  Country: US (occurrence: US)
  Receive Date: 20241025
  Receipt Date: 20241217
  Transmission Date: 20250115
  Serious: Yes (Other)
  Sender: HELSINN HEALTHCARE
  Company Number: US-HBP-2024US030582

PATIENT
  Age: 70 Year
  Sex: Female

DRUGS (3)
  1. VALCHLOR [Suspect]
     Active Substance: MECHLORETHAMINE
     Indication: Cutaneous T-cell lymphoma
     Dosage: THIN FILM, EVERY NIGHT
     Route: 061
  2. VALCHLOR [Suspect]
     Active Substance: MECHLORETHAMINE
     Dosage: THIN FILM, TO AFFECTED AREAS EVERY NIGHT
     Route: 061
  3. VALCHLOR [Suspect]
     Active Substance: MECHLORETHAMINE
     Dosage: THIN FILM, TO AFFECTED AREAS EVERY NIGHT
     Route: 061

REACTIONS (7)
  - Chemical burn of skin [Unknown]
  - Application site pain [Unknown]
  - Eye swelling [Unknown]
  - Product dose omission issue [Unknown]
  - Application site erythema [Unknown]
  - Application site swelling [Unknown]
  - Application site rash [Unknown]

NARRATIVE: CASE EVENT DATE: 20241007
